FAERS Safety Report 10082444 (Version 1)
Quarter: 2014Q2

REPORT INFORMATION
  Report Type: Spontaneous
  Country: IT (occurrence: IT)
  Receive Date: 20140416
  Receipt Date: 20140416
  Transmission Date: 20141212
  Serious: Yes (Hospitalization)
  Sender: FDA-Public Use
  Company Number: IT-ACTAVIS-2013-25255

PATIENT
  Age: 58 Year
  Sex: Female

DRUGS (5)
  1. OXALIPLATIN (UNKNOWN) [Suspect]
     Indication: COLORECTAL ADENOCARCINOMA
     Dates: start: 20130925, end: 20130925
  2. OXALIPLATIN (UNKNOWN) [Suspect]
     Dates: start: 20130508, end: 20131025
  3. FLUOROURACIL [Concomitant]
     Indication: PRODUCT USED FOR UNKNOWN INDICATION
     Route: 040
     Dates: start: 20130925, end: 20130925
  4. FLUOROURACIL [Concomitant]
     Dates: start: 20130508, end: 20131025
  5. LEDERFOLIN [Concomitant]
     Indication: PRODUCT USED FOR UNKNOWN INDICATION
     Route: 065
     Dates: start: 20130925, end: 20130925

REACTIONS (5)
  - Chest discomfort [Recovered/Resolved]
  - Dyspnoea [Recovered/Resolved]
  - Feeling hot [Recovered/Resolved]
  - Flushing [Recovered/Resolved]
  - Rash macular [Recovered/Resolved]
